FAERS Safety Report 5313107-1 (Version None)
Quarter: 2007Q2

REPORT INFORMATION
  Report Type: 
  Country: None (occurrence: None)
  Receive Date: 20070430
  Receipt Date: 20070419
  Transmission Date: 20071010
  Serious: Yes (Hospitalization, Other)
  Sender: FDA-Public Use
  Company Number: FR-PFIZER INC-2007032136

PATIENT
  Age: 61 Year
  Sex: Female

DRUGS (1)
  1. SALAZOPYRINE [Suspect]
     Indication: CROHN'S DISEASE
     Dates: start: 20060101, end: 20070320

REACTIONS (12)
  - BACK PAIN [None]
  - C-REACTIVE PROTEIN INCREASED [None]
  - DEPRESSION [None]
  - HAEMORRHAGE [None]
  - LIBIDO DECREASED [None]
  - NEUROPATHY PERIPHERAL [None]
  - PLATELET COUNT DECREASED [None]
  - PROTEINURIA [None]
  - PYREXIA [None]
  - RED BLOOD CELL SEDIMENTATION RATE INCREASED [None]
  - URINARY TRACT INFECTION [None]
  - WHITE BLOOD CELL DISORDER [None]
